FAERS Safety Report 18420995 (Version 2)
Quarter: 2020Q4

REPORT INFORMATION
  Report Type: Spontaneous
  Country: DE (occurrence: DE)
  Receive Date: 20201023
  Receipt Date: 20201115
  Transmission Date: 20210114
  Serious: Yes (Disabling)
  Sender: FDA-Public Use
  Company Number: NVSC2020DE282632

PATIENT
  Age: 33 Year
  Sex: Male
  Weight: 83 kg

DRUGS (12)
  1. DICLOFENAC [Suspect]
     Active Substance: DICLOFENAC
     Indication: PAIN
     Dosage: 100 MG
     Route: 065
     Dates: start: 20190818, end: 20190902
  2. PIRITRAMIDE [Suspect]
     Active Substance: PIRITRAMIDE
     Indication: SURGERY
     Dosage: 7.5 MG, ONCE/SINGLE
     Route: 065
  3. HALDOL DECANOATE [Suspect]
     Active Substance: HALOPERIDOL DECANOATE
     Indication: SURGERY
     Route: 065
  4. MIVACURIUM [Suspect]
     Active Substance: MIVACURIUM
     Indication: SURGERY
     Dosage: 14 MG, ONCE/SINGLE
     Route: 065
  5. DEXAMETHASONE. [Suspect]
     Active Substance: DEXAMETHASONE
     Indication: SURGERY
     Dosage: 8 MG, ONCE/SINGLE
     Route: 065
  6. PROPOFOL. [Suspect]
     Active Substance: PROPOFOL
     Indication: ANAESTHESIA
     Dosage: 300 MG
     Route: 042
     Dates: start: 20190819, end: 20190819
  7. PROPOFOL. [Suspect]
     Active Substance: PROPOFOL
     Indication: TONSILLECTOMY
     Dosage: 300 MG, ONCE/SINGLE
     Route: 065
     Dates: start: 20190820, end: 20190820
  8. ONDANSETRON [Suspect]
     Active Substance: ONDANSETRON
     Indication: SURGERY
     Dosage: 4 MG
     Route: 065
  9. AMIKACIN. [Suspect]
     Active Substance: AMIKACIN
     Indication: PRODUCT USED FOR UNKNOWN INDICATION
     Route: 065
  10. NOVAMINSULFON [Concomitant]
     Active Substance: METAMIZOLE
     Indication: SURGERY
     Dosage: 2500 MG, ONCE/SINGLE
     Route: 065
  11. FENTANYL CITRATE. [Suspect]
     Active Substance: FENTANYL CITRATE
     Indication: SURGERY
     Dosage: 0.2 MG, ONCE/SINGLE
     Route: 065
  12. SEVOFLURANE. [Suspect]
     Active Substance: SEVOFLURANE
     Indication: SURGERY
     Dosage: 2.3 %
     Route: 065

REACTIONS (19)
  - Dizziness [Not Recovered/Not Resolved]
  - Flatulence [Not Recovered/Not Resolved]
  - Cardiovascular disorder [Not Recovered/Not Resolved]
  - General physical health deterioration [Not Recovered/Not Resolved]
  - Oropharyngeal pain [Not Recovered/Not Resolved]
  - Somnolence [Not Recovered/Not Resolved]
  - Heart rate increased [Not Recovered/Not Resolved]
  - Blood pressure measurement [Not Recovered/Not Resolved]
  - Speech disorder [Not Recovered/Not Resolved]
  - Dyspnoea [Not Recovered/Not Resolved]
  - Oropharyngeal discomfort [Not Recovered/Not Resolved]
  - Chest pain [Not Recovered/Not Resolved]
  - Visual impairment [Not Recovered/Not Resolved]
  - Weight bearing difficulty [Not Recovered/Not Resolved]
  - Asthenia [Not Recovered/Not Resolved]
  - Performance status decreased [Not Recovered/Not Resolved]
  - Hyperventilation [Not Recovered/Not Resolved]
  - Chest discomfort [Not Recovered/Not Resolved]
  - Vision blurred [Not Recovered/Not Resolved]

NARRATIVE: CASE EVENT DATE: 20190818
